FAERS Safety Report 4633751-4 (Version None)
Quarter: 2005Q2

REPORT INFORMATION
  Report Type: 
  Country: None (occurrence: None)
  Receive Date: 20050325
  Receipt Date: 20041222
  Transmission Date: 20051028
  Serious: No
  Sender: FDA-Public Use
  Company Number: USA041286803

PATIENT
  Age: 87 Year
  Sex: Female

DRUGS (6)
  1. FORTEO [Suspect]
     Dates: start: 20041101
  2. REMINYL [Concomitant]
  3. SINEMET [Concomitant]
  4. LASIX [Concomitant]
  5. DETROL [Concomitant]
  6. RISPERDAL [Concomitant]

REACTIONS (1)
  - PRURITUS [None]
